FAERS Safety Report 7003231-X (Version None)
Quarter: 2010Q3

REPORT INFORMATION
  Report Type: 
  Country: None (occurrence: None)
  Receive Date: 20100920
  Receipt Date: 20100914
  Transmission Date: 20110219
  Serious: Yes (Life-Threatening, Hospitalization)
  Sender: FDA-Public Use
  Company Number: GB-AMGEN-KDC410378

PATIENT
  Sex: Female

DRUGS (5)
  1. VECTIBIX [Suspect]
     Indication: GASTROOESOPHAGEAL CANCER
     Dates: start: 20091112
  2. EPIRUBICIN [Suspect]
     Dates: start: 20091112
  3. OXALIPLATIN [Suspect]
     Dates: start: 20091112
  4. CAPECITABINE [Suspect]
     Dates: start: 20091112
  5. TINZAPARIN SODIUM [Concomitant]

REACTIONS (1)
  - ISCHAEMIC STROKE [None]
